FAERS Safety Report 26046218 (Version 1)
Quarter: 2025Q4

REPORT INFORMATION
  Report Type: Spontaneous
  Country: US (occurrence: US)
  Receive Date: 20251114
  Receipt Date: 20251114
  Transmission Date: 20260117
  Serious: Yes (Life-Threatening, Hospitalization)
  Sender: MYLAN
  Company Number: US-MYLANLABS-2025M1095590

PATIENT
  Age: 54 Year
  Sex: Female

DRUGS (44)
  1. EPINEPHRINE [Suspect]
     Active Substance: EPINEPHRINE
     Indication: Hypotension
     Dosage: 1 MILLIGRAM,WAS GIVEN IN THREE DOSES OVER 3 MINUTES INTRAVENOUS BOLUS
  2. EPINEPHRINE [Suspect]
     Active Substance: EPINEPHRINE
     Dosage: 1 MILLIGRAM,WAS GIVEN IN THREE DOSES OVER 3 MINUTES INTRAVENOUS BOLUS
     Route: 042
  3. EPINEPHRINE [Suspect]
     Active Substance: EPINEPHRINE
     Dosage: 1 MILLIGRAM,WAS GIVEN IN THREE DOSES OVER 3 MINUTES INTRAVENOUS BOLUS
     Route: 042
  4. EPINEPHRINE [Suspect]
     Active Substance: EPINEPHRINE
     Dosage: 1 MILLIGRAM,WAS GIVEN IN THREE DOSES OVER 3 MINUTES INTRAVENOUS BOLUS
  5. PHENYLEPHRINE [Concomitant]
     Active Substance: PHENYLEPHRINE
     Indication: Prophylaxis
     Dosage: 120 MICROGRAM, QMINUTE, INFUSION
  6. PHENYLEPHRINE [Concomitant]
     Active Substance: PHENYLEPHRINE
     Dosage: 120 MICROGRAM, QMINUTE, INFUSION
  7. PHENYLEPHRINE [Concomitant]
     Active Substance: PHENYLEPHRINE
     Dosage: 120 MICROGRAM, QMINUTE, INFUSION
     Route: 065
  8. PHENYLEPHRINE [Concomitant]
     Active Substance: PHENYLEPHRINE
     Dosage: 120 MICROGRAM, QMINUTE, INFUSION
     Route: 065
  9. PHENYLEPHRINE [Concomitant]
     Active Substance: PHENYLEPHRINE
     Dosage: 10-30 MCG/MIN, INFUSION
  10. PHENYLEPHRINE [Concomitant]
     Active Substance: PHENYLEPHRINE
     Dosage: 10-30 MCG/MIN, INFUSION
  11. PHENYLEPHRINE [Concomitant]
     Active Substance: PHENYLEPHRINE
     Dosage: 10-30 MCG/MIN, INFUSION
     Route: 065
  12. PHENYLEPHRINE [Concomitant]
     Active Substance: PHENYLEPHRINE
     Dosage: 10-30 MCG/MIN, INFUSION
     Route: 065
  13. CEFAZOLIN [Concomitant]
     Active Substance: CEFAZOLIN
     Indication: Evidence based treatment
     Dosage: UNK
  14. CEFAZOLIN [Concomitant]
     Active Substance: CEFAZOLIN
     Dosage: UNK
     Route: 065
  15. CEFAZOLIN [Concomitant]
     Active Substance: CEFAZOLIN
     Dosage: UNK
     Route: 065
  16. CEFAZOLIN [Concomitant]
     Active Substance: CEFAZOLIN
     Dosage: UNK
  17. BIVALIRUDIN [Concomitant]
     Active Substance: BIVALIRUDIN
     Indication: Anticoagulant therapy
     Dosage: UNK
  18. BIVALIRUDIN [Concomitant]
     Active Substance: BIVALIRUDIN
     Dosage: UNK
     Route: 065
  19. BIVALIRUDIN [Concomitant]
     Active Substance: BIVALIRUDIN
     Dosage: UNK
     Route: 065
  20. BIVALIRUDIN [Concomitant]
     Active Substance: BIVALIRUDIN
     Dosage: UNK
  21. EPOPROSTENOL [Concomitant]
     Active Substance: EPOPROSTENOL
     Indication: Product used for unknown indication
     Dosage: 0.05 MICROGRAM/KILOGRAM, QMINUTE, RESPIRATORY (INHALATION)
  22. EPOPROSTENOL [Concomitant]
     Active Substance: EPOPROSTENOL
     Dosage: 0.05 MICROGRAM/KILOGRAM, QMINUTE, RESPIRATORY (INHALATION)
     Route: 055
  23. EPOPROSTENOL [Concomitant]
     Active Substance: EPOPROSTENOL
     Dosage: 0.05 MICROGRAM/KILOGRAM, QMINUTE, RESPIRATORY (INHALATION)
     Route: 055
  24. EPOPROSTENOL [Concomitant]
     Active Substance: EPOPROSTENOL
     Dosage: 0.05 MICROGRAM/KILOGRAM, QMINUTE, RESPIRATORY (INHALATION)
  25. MIDAZOLAM [Concomitant]
     Active Substance: MIDAZOLAM
     Indication: General anaesthesia
     Dosage: UNK
  26. MIDAZOLAM [Concomitant]
     Active Substance: MIDAZOLAM
     Dosage: UNK
     Route: 065
  27. MIDAZOLAM [Concomitant]
     Active Substance: MIDAZOLAM
     Dosage: UNK
     Route: 065
  28. MIDAZOLAM [Concomitant]
     Active Substance: MIDAZOLAM
     Dosage: UNK
  29. FENTANYL [Concomitant]
     Active Substance: FENTANYL
     Indication: General anaesthesia
     Dosage: UNK
  30. FENTANYL [Concomitant]
     Active Substance: FENTANYL
     Dosage: UNK
     Route: 065
  31. FENTANYL [Concomitant]
     Active Substance: FENTANYL
     Dosage: UNK
     Route: 065
  32. FENTANYL [Concomitant]
     Active Substance: FENTANYL
     Dosage: UNK
  33. PROPOFOL [Concomitant]
     Active Substance: PROPOFOL
     Indication: General anaesthesia
     Dosage: UNK
  34. PROPOFOL [Concomitant]
     Active Substance: PROPOFOL
     Dosage: UNK
     Route: 065
  35. PROPOFOL [Concomitant]
     Active Substance: PROPOFOL
     Dosage: UNK
     Route: 065
  36. PROPOFOL [Concomitant]
     Active Substance: PROPOFOL
     Dosage: UNK
  37. ROCURONIUM [Concomitant]
     Active Substance: ROCURONIUM BROMIDE
     Indication: General anaesthesia
     Dosage: UNK
  38. ROCURONIUM [Concomitant]
     Active Substance: ROCURONIUM BROMIDE
     Dosage: UNK
     Route: 065
  39. ROCURONIUM [Concomitant]
     Active Substance: ROCURONIUM BROMIDE
     Dosage: UNK
     Route: 065
  40. ROCURONIUM [Concomitant]
     Active Substance: ROCURONIUM BROMIDE
     Dosage: UNK
  41. SEVOFLURANE [Concomitant]
     Active Substance: SEVOFLURANE
     Indication: General anaesthesia
     Dosage: UNK
  42. SEVOFLURANE [Concomitant]
     Active Substance: SEVOFLURANE
     Dosage: UNK
     Route: 065
  43. SEVOFLURANE [Concomitant]
     Active Substance: SEVOFLURANE
     Dosage: UNK
     Route: 065
  44. SEVOFLURANE [Concomitant]
     Active Substance: SEVOFLURANE
     Dosage: UNK

REACTIONS (6)
  - Stress cardiomyopathy [Recovered/Resolved]
  - Cardiogenic shock [Recovered/Resolved]
  - Distributive shock [Recovered/Resolved]
  - Condition aggravated [Unknown]
  - Respiratory failure [Recovered/Resolved]
  - Lactic acidosis [Unknown]
